FAERS Safety Report 10352089 (Version 1)
Quarter: 2014Q3

REPORT INFORMATION
  Report Type: Spontaneous
  Country: US (occurrence: US)
  Receive Date: 20140730
  Receipt Date: 20140730
  Transmission Date: 20150326
  Serious: No
  Sender: FDA-Public Use
  Company Number: US-ABBVIE-13P-163-1154140-00

PATIENT
  Age: 61 Year
  Sex: Female
  Weight: 55.97 kg

DRUGS (2)
  1. SYNTHROID [Suspect]
     Active Substance: LEVOTHYROXINE SODIUM
     Indication: HYPOTHYROIDISM
     Route: 048
     Dates: start: 201307, end: 201308
  2. NYSTATIN. [Concomitant]
     Active Substance: NYSTATIN
     Indication: RASH
     Dosage: APPLY TO RASH DAILY UNTIL RESOLVED

REACTIONS (6)
  - Irritability [Recovering/Resolving]
  - Feeling abnormal [Recovering/Resolving]
  - Mood swings [Recovering/Resolving]
  - Road traffic accident [Unknown]
  - Heart rate increased [Recovered/Resolved]
  - Skin candida [Unknown]

NARRATIVE: CASE EVENT DATE: 201307
